FAERS Safety Report 24713076 (Version 1)
Quarter: 2024Q4

REPORT INFORMATION
  Report Type: Spontaneous
  Country: US (occurrence: US)
  Receive Date: 20241209
  Receipt Date: 20241209
  Transmission Date: 20250114
  Serious: Yes (Other)
  Sender: NOVO NORDISK
  Company Number: US-NOVOPROD-1320216

PATIENT
  Age: 45 Year
  Sex: Male

DRUGS (1)
  1. LEVEMIR [Suspect]
     Active Substance: INSULIN DETEMIR
     Indication: Diabetes mellitus
     Dosage: 50 IU, QD
     Route: 058

REACTIONS (1)
  - Neuropathic arthropathy [Not Recovered/Not Resolved]

NARRATIVE: CASE EVENT DATE: 20170801
